FAERS Safety Report 26149646 (Version 1)
Quarter: 2025Q4

REPORT INFORMATION
  Report Type: Spontaneous
  Country: US (occurrence: US)
  Receive Date: 20251212
  Receipt Date: 20251212
  Transmission Date: 20260117
  Serious: Yes (Death, Hospitalization)
  Sender: MYLAN
  Company Number: US-MYLANLABS-2025M1105232

PATIENT
  Age: 19 Year
  Sex: Male

DRUGS (12)
  1. VALPROATE [Suspect]
     Active Substance: VALPROIC ACID
     Indication: Mania
     Dosage: 250 MILLIGRAM, BID
  2. VALPROATE [Suspect]
     Active Substance: VALPROIC ACID
     Dosage: 250 MILLIGRAM, BID
     Route: 065
  3. VALPROATE [Suspect]
     Active Substance: VALPROIC ACID
     Dosage: 250 MILLIGRAM, BID
     Route: 065
  4. VALPROATE [Suspect]
     Active Substance: VALPROIC ACID
     Dosage: 250 MILLIGRAM, BID
  5. ARIPIPRAZOLE [Concomitant]
     Active Substance: ARIPIPRAZOLE
     Indication: Mania
     Dosage: 15 MILLIGRAM, QD
  6. ARIPIPRAZOLE [Concomitant]
     Active Substance: ARIPIPRAZOLE
     Dosage: 15 MILLIGRAM, QD
     Route: 065
  7. ARIPIPRAZOLE [Concomitant]
     Active Substance: ARIPIPRAZOLE
     Dosage: 15 MILLIGRAM, QD
     Route: 065
  8. ARIPIPRAZOLE [Concomitant]
     Active Substance: ARIPIPRAZOLE
     Dosage: 15 MILLIGRAM, QD
  9. LITHIUM [Concomitant]
     Active Substance: LITHIUM
     Indication: Mania
     Dosage: UNK
  10. LITHIUM [Concomitant]
     Active Substance: LITHIUM
     Dosage: UNK
     Route: 065
  11. LITHIUM [Concomitant]
     Active Substance: LITHIUM
     Dosage: UNK
     Route: 065
  12. LITHIUM [Concomitant]
     Active Substance: LITHIUM
     Dosage: UNK

REACTIONS (3)
  - Unmasking of previously unidentified disease [Fatal]
  - Ornithine transcarbamoylase deficiency [Fatal]
  - Hyperammonaemia [Unknown]
